FAERS Safety Report 7276744-3 (Version None)
Quarter: 2011Q1

REPORT INFORMATION
  Report Type: 
  Country: None (occurrence: None)
  Receive Date: 20110204
  Receipt Date: 20110201
  Transmission Date: 20110831
  Serious: Yes (Other)
  Sender: FDA-Public Use
  Company Number: US-PFIZER INC-2010175578

PATIENT
  Age: 69 Year
  Sex: Female
  Weight: 79.365 kg

DRUGS (6)
  1. SULAR [Concomitant]
  2. CRESTOR [Concomitant]
  3. MULTI-VITAMINS [Concomitant]
  4. VITAMIN D [Concomitant]
  5. ADVIL COLD AND SINUS [Suspect]
     Dosage: UNK
     Dates: start: 20101213, end: 20101213
  6. OSCAL [Concomitant]

REACTIONS (2)
  - PALPITATIONS [None]
  - DIZZINESS [None]
